FAERS Safety Report 12674232 (Version 2)
Quarter: 2016Q3

REPORT INFORMATION
  Report Type: Spontaneous
  Country: US (occurrence: US)
  Receive Date: 20160822
  Receipt Date: 20160928
  Transmission Date: 20161109
  Serious: Yes (Hospitalization, Other)
  Sender: FDA-Public Use
  Company Number: US-PFIZER INC-2016396191

PATIENT
  Age: 51 Year
  Sex: Male

DRUGS (1)
  1. CHANTIX [Suspect]
     Active Substance: VARENICLINE TARTRATE
     Indication: SMOKING CESSATION THERAPY
     Dosage: UNK
     Route: 048
     Dates: start: 20160624, end: 20160625

REACTIONS (2)
  - Gangrene [Not Recovered/Not Resolved]
  - Priapism [Not Recovered/Not Resolved]

NARRATIVE: CASE EVENT DATE: 201606
